FAERS Safety Report 5142484-X (Version None)
Quarter: 2006Q4

REPORT INFORMATION
  Report Type: 
  Country: None (occurrence: None)
  Receive Date: 20061102
  Receipt Date: 20060906
  Transmission Date: 20070319
  Serious: Yes (Hospitalization)
  Sender: FDA-Public Use
  Company Number: US-ELI_LILLY_AND_COMPANY-US200609001362

PATIENT
  Age: 59 Year
  Sex: Female

DRUGS (4)
  1. HUMALOG MIX 50/50 [Suspect]
     Indication: BLOOD GLUCOSE FLUCTUATION
     Dosage: 50 U, EACH MORNING
     Dates: start: 20060101
  2. LANTUS [Concomitant]
     Indication: BLOOD GLUCOSE FLUCTUATION
  3. BYETTA [Concomitant]
     Indication: BLOOD GLUCOSE FLUCTUATION
     Dosage: UNK UNK, 2/D
     Dates: start: 20060101
  4. BYETTA [Concomitant]
     Dosage: 10 MG, 2/D
     Dates: start: 20060801

REACTIONS (13)
  - ASTHENIA [None]
  - BLOOD GLUCOSE DECREASED [None]
  - BLOOD GLUCOSE INCREASED [None]
  - CHEST PAIN [None]
  - CORONARY ARTERY OCCLUSION [None]
  - DECREASED APPETITE [None]
  - DRUG DOSE OMISSION [None]
  - DYSGRAPHIA [None]
  - GAIT DISTURBANCE [None]
  - MALAISE [None]
  - NAUSEA [None]
  - PHARMACEUTICAL PRODUCT COMPLAINT [None]
  - TREMOR [None]
